FAERS Safety Report 5228246-3 (Version None)
Quarter: 2007Q1

REPORT INFORMATION
  Report Type: 
  Country: None (occurrence: None)
  Receive Date: 20070205
  Receipt Date: 20070126
  Transmission Date: 20070707
  Serious: Yes (Other)
  Sender: FDA-Public Use
  Company Number: US-ELI_LILLY_AND_COMPANY-US200701005458

PATIENT
  Age: 18 Year
  Sex: Female

DRUGS (4)
  1. ZYPREXA [Suspect]
     Indication: BIPOLAR DISORDER
     Dosage: 10 MG, UNK
  2. VALPROATE BISMUTH [Concomitant]
  3. SEROQUEL [Concomitant]
  4. LAMOTRIGINE [Concomitant]

REACTIONS (6)
  - ALANINE AMINOTRANSFERASE INCREASED [None]
  - BLOOD ALKALINE PHOSPHATASE INCREASED [None]
  - BLOOD BILIRUBIN INCREASED [None]
  - HYPERSENSITIVITY [None]
  - MIXED HEPATOCELLULAR-CHOLESTATIC INJURY [None]
  - RASH MACULAR [None]
